FAERS Safety Report 8127580-7 (Version None)
Quarter: 2012Q1

REPORT INFORMATION
  Report Type: 
  Country: None (occurrence: None)
  Receive Date: 20120210
  Receipt Date: 20120131
  Transmission Date: 20120608
  Serious: Yes (Other)
  Sender: FDA-Public Use
  Company Number: US-ELI_LILLY_AND_COMPANY-US201110000681

PATIENT
  Sex: Female

DRUGS (3)
  1. FORTEO [Suspect]
     Dosage: 20 UG, QD
     Route: 065
  2. FORTEO [Suspect]
     Dosage: 20 UG, QD
     Route: 065
     Dates: start: 20111101
  3. FORTEO [Suspect]
     Indication: OSTEOPOROSIS
     Dosage: 20 UG, QD
     Route: 065
     Dates: start: 20110926, end: 20111026

REACTIONS (14)
  - VERTIGO [None]
  - INTENTIONAL DRUG MISUSE [None]
  - HEAD INJURY [None]
  - GAIT DISTURBANCE [None]
  - DIARRHOEA [None]
  - LIMB INJURY [None]
  - FALL [None]
  - MALAISE [None]
  - NASOPHARYNGITIS [None]
  - HAEMATURIA [None]
  - DIZZINESS [None]
  - NAUSEA [None]
  - CONCUSSION [None]
  - PAIN [None]
